FAERS Safety Report 8297867 (Version 4)
Quarter: 2012Q4

REPORT INFORMATION
  Report Type: Report from Study
  Country: NL (occurrence: NL)
  Receive Date: 20111219
  Receipt Date: 20121101
  Transmission Date: 20130627
  Serious: No
  Sender: FDA-Public Use
  Company Number: NL-JNJFOC-20111202386

PATIENT
  Age: 8 Year
  Sex: Male

DRUGS (2)
  1. REMICADE [Suspect]
     Indication: CROHN^S DISEASE
     Route: 042
     Dates: start: 20090216
  2. PREDNISONE [Concomitant]

REACTIONS (1)
  - Dehydration [Recovered/Resolved]
